FAERS Safety Report 4391554-2 (Version None)
Quarter: 2004Q3

REPORT INFORMATION
  Report Type: 
  Country: None (occurrence: None)
  Receive Date: 20040701
  Receipt Date: 20040616
  Transmission Date: 20050211
  Serious: Yes (Other)
  Sender: FDA-Public Use
  Company Number: 195966

PATIENT
  Age: 43 Year
  Sex: Male

DRUGS (6)
  1. AVONEX [Suspect]
     Indication: MULTIPLE SCLEROSIS
     Dates: start: 19980701, end: 20040401
  2. BACLOFEN [Concomitant]
  3. VALIUM [Concomitant]
  4. FLONASE [Concomitant]
  5. HYTRIN [Concomitant]
  6. PREVACID [Concomitant]

REACTIONS (1)
  - HEPATIC STEATOSIS [None]
